FAERS Safety Report 15563180 (Version 1)
Quarter: 2018Q4

REPORT INFORMATION
  Report Type: Spontaneous
  Country: FR (occurrence: FR)
  Receive Date: 20181029
  Receipt Date: 20181029
  Transmission Date: 20190205
  Serious: Yes (Hospitalization)
  Sender: FDA-Public Use
  Company Number: FR-MYLANLABS-2018M1080208

PATIENT
  Age: 69 Year
  Sex: Male

DRUGS (6)
  1. EMEND [Suspect]
     Active Substance: APREPITANT
     Indication: PREMEDICATION
     Dosage: 125 MG ? J1, 80 MG ? J2 ET J3
     Route: 048
  2. ZOPHREN                            /00955302/ [Suspect]
     Active Substance: ONDANSETRON
     Indication: PREMEDICATION
     Dosage: 8 MG MATIN ET SOIR ? J1
     Route: 048
     Dates: start: 20180507, end: 20180507
  3. VENLAFAXINE [Concomitant]
     Active Substance: VENLAFAXINE HYDROCHLORIDE
     Indication: PRODUCT USED FOR UNKNOWN INDICATION
     Dosage: 75 MG MATIN + 37.5 MG LE SOIR PUIS DIMINUTION DE POSOLOGIE LE 11/05 ? 75 MG MATIN
     Route: 048
  4. PREDNISONE. [Suspect]
     Active Substance: PREDNISONE
     Indication: PREMEDICATION
     Dosage: 80 MG ? J1, 60 MG ? J2 ET J3
     Route: 048
  5. ATORVASTATINE                      /01326101/ [Concomitant]
     Active Substance: ATORVASTATIN
     Indication: PRODUCT USED FOR UNKNOWN INDICATION
     Dosage: 40 MG, 1CYCLICAL
     Route: 048
     Dates: end: 20180511
  6. CISPLATIN MYLAN [Suspect]
     Active Substance: CISPLATIN
     Indication: SQUAMOUS CELL CARCINOMA
     Dosage: 170 MG, 1CYCLICAL
     Route: 042
     Dates: start: 20180507, end: 20180507

REACTIONS (1)
  - Acute kidney injury [Not Recovered/Not Resolved]

NARRATIVE: CASE EVENT DATE: 20180511
